FAERS Safety Report 4888505-0 (Version None)
Quarter: 2005Q4

REPORT INFORMATION
  Report Type: 
  Country: None (occurrence: None)
  Receive Date: 20051207
  Receipt Date: 20050302
  Transmission Date: 20060501
  Serious: Yes (Other)
  Sender: FDA-Public Use
  Company Number: 2005040345

PATIENT
  Age: 48 Year
  Sex: Male
  Weight: 136.9863 kg

DRUGS (5)
  1. VIAGRA [Suspect]
     Indication: ERECTILE DYSFUNCTION
     Dosage: 50 MG (50 MG, AS NECESSARY), ORAL
     Route: 048
     Dates: start: 20050101
  2. YOHIMBE BARK (YOHIMBE BARK) [Concomitant]
  3. DIAZEPAM [Concomitant]
  4. VICODIN [Concomitant]
  5. PIOGLITAZONE HCL [Concomitant]

REACTIONS (1)
  - ERECTION INCREASED [None]
